FAERS Safety Report 5007419-9 (Version None)
Quarter: 2006Q2

REPORT INFORMATION
  Report Type: 
  Country: None (occurrence: None)
  Receive Date: 20060517
  Receipt Date: 20060505
  Transmission Date: 20061013
  Serious: Yes (Other)
  Sender: FDA-Public Use
  Company Number: 2006-DE-02265GD

PATIENT
  Age: 32 Year
  Sex: Female

DRUGS (7)
  1. PREDNISONE TAB [Suspect]
     Indication: ASTHMA
     Dosage: SEE IMAGE, PO
     Route: 048
  2. SALBUTAMOL (SALBUTAMOL) [Suspect]
     Indication: WHEEZING
     Dosage: IH
     Route: 055
  3. SINGULAIR [Suspect]
     Indication: ASTHMA
     Dosage: 10 MG
  4. CETIRIZINE (CETIRIZINE) [Suspect]
     Indication: ASTHMA
     Dosage: 10 MG
  5. FEXOFENADINE HCL [Suspect]
     Indication: ASTHMA
     Dosage: 180 MG
  6. PULMICORT [Concomitant]
  7. CYCLOSPORINE [Concomitant]

REACTIONS (13)
  - ANAPHYLACTIC REACTION [None]
  - ASTHMA [None]
  - CAESAREAN SECTION [None]
  - CONDITION AGGRAVATED [None]
  - CUSHINGOID [None]
  - DRUG RESISTANCE [None]
  - MOUTH ULCERATION [None]
  - PETECHIAE [None]
  - PREMATURE BABY [None]
  - PROCEDURAL COMPLICATION [None]
  - SERUM SICKNESS [None]
  - THERAPY NON-RESPONDER [None]
  - WEIGHT DECREASED [None]
